FAERS Safety Report 7315145-6 (Version None)
Quarter: 2011Q1

REPORT INFORMATION
  Report Type: 
  Country: None (occurrence: None)
  Receive Date: 20110225
  Receipt Date: 20110218
  Transmission Date: 20110831
  Serious: Yes (Hospitalization)
  Sender: FDA-Public Use
  Company Number: US-AMGEN-USASP2011009904

PATIENT
  Age: 63 Year
  Sex: Male

DRUGS (5)
  1. REMICADE [Concomitant]
  2. HUMIRA [Concomitant]
  3. TREXALL [Concomitant]
     Dosage: 1 MG, QWK
     Dates: start: 20100101
  4. ENBREL [Suspect]
     Indication: RHEUMATOID ARTHRITIS
     Dosage: 50 MG, QWK
     Dates: start: 20040501
  5. ORENCIA [Concomitant]
     Dosage: UNK
     Dates: start: 20081003, end: 20100601

REACTIONS (5)
  - MYOCARDIAL INFARCTION [None]
  - INJECTION SITE HAEMORRHAGE [None]
  - RHEUMATOID ARTHRITIS [None]
  - PULMONARY EMBOLISM [None]
  - INJECTION SITE DISCOMFORT [None]
